FAERS Safety Report 15191843 (Version 15)
Quarter: 2019Q3

REPORT INFORMATION
  Report Type: Report from Study
  Country: US (occurrence: US)
  Receive Date: 20180724
  Receipt Date: 20190708
  Transmission Date: 20191004
  Serious: Yes (Hospitalization, Other)
  Sender: FDA-Public Use
  Company Number: US-ACTELION-A-US2018-175238

PATIENT
  Age: 68 Year
  Sex: Female
  Weight: 58.96 kg

DRUGS (7)
  1. REVATIO [Concomitant]
     Active Substance: SILDENAFIL CITRATE
  2. AMLODIPINE [Concomitant]
     Active Substance: AMLODIPINE BESYLATE
  3. VELETRI [Suspect]
     Active Substance: EPOPROSTENOL
     Indication: PULMONARY HYPERTENSION
     Dosage: 6 NG/KG, PER MIN
     Route: 042
     Dates: start: 20180729
  4. VELETRI [Suspect]
     Active Substance: EPOPROSTENOL
     Dosage: 4 NG/KG, PER MIN
     Route: 042
  5. AMBRISENTAN [Concomitant]
     Active Substance: AMBRISENTAN
  6. VELETRI [Suspect]
     Active Substance: EPOPROSTENOL
     Dosage: 2 NG/KG, PER MIN
     Route: 042
  7. VELETRI [Suspect]
     Active Substance: EPOPROSTENOL
     Dosage: 7 NG/KG, PER MIN
     Route: 042

REACTIONS (25)
  - Headache [Unknown]
  - Catheter site haemorrhage [Unknown]
  - Catheter site erythema [Unknown]
  - Gastrointestinal inflammation [Not Recovered/Not Resolved]
  - Gastrointestinal disorder [Unknown]
  - Taste disorder [Unknown]
  - Dermatitis contact [Unknown]
  - Device issue [Unknown]
  - Liver transplant [Unknown]
  - Device breakage [Unknown]
  - Abdominal pain upper [Not Recovered/Not Resolved]
  - Diarrhoea [Not Recovered/Not Resolved]
  - Weight decreased [Unknown]
  - Gastrointestinal haemorrhage [Unknown]
  - Administration site hypersensitivity [Unknown]
  - Decreased appetite [Unknown]
  - Oedema peripheral [Unknown]
  - Aspiration pleural cavity [Unknown]
  - Pulmonary oedema [Unknown]
  - Pain [Unknown]
  - Sepsis [Unknown]
  - Abdominal cavity drainage [Unknown]
  - Catheter site pruritus [Unknown]
  - Nausea [Unknown]
  - Pain in jaw [Not Recovered/Not Resolved]

NARRATIVE: CASE EVENT DATE: 20190207
